FAERS Safety Report 21931883 (Version 1)
Quarter: 2023Q1

REPORT INFORMATION
  Report Type: Spontaneous
  Country: FR (occurrence: FR)
  Receive Date: 20230131
  Receipt Date: 20230131
  Transmission Date: 20230418
  Serious: Yes (Death)
  Sender: FDA-Public Use
  Company Number: None

PATIENT
  Age: 73 Year
  Sex: Male
  Weight: 80 kg

DRUGS (7)
  1. CARBOPLATIN [Suspect]
     Active Substance: CARBOPLATIN
     Indication: Bronchial carcinoma
     Dates: start: 20221006, end: 20221006
  2. PACLITAXEL [Suspect]
     Active Substance: PACLITAXEL
     Indication: Bronchial carcinoma
     Dates: start: 20221006, end: 20221006
  3. CORDARONE [Concomitant]
     Active Substance: AMIODARONE HYDROCHLORIDE
  4. METHYLPREDNISOLONE [Concomitant]
     Active Substance: METHYLPREDNISOLONE
  5. PROPRANOLOL [Concomitant]
     Active Substance: PROPRANOLOL HYDROCHLORIDE
  6. POLARAMINE [Concomitant]
     Active Substance: DEXCHLORPHENIRAMINE MALEATE
  7. RANITIDINE [Concomitant]
     Active Substance: RANITIDINE

REACTIONS (1)
  - Cardio-respiratory arrest [Fatal]

NARRATIVE: CASE EVENT DATE: 20221006
